FAERS Safety Report 11580021 (Version 3)
Quarter: 2015Q4

REPORT INFORMATION
  Report Type: Report from Study
  Country: BR (occurrence: BR)
  Receive Date: 20150930
  Receipt Date: 20151022
  Transmission Date: 20160304
  Serious: Yes (Hospitalization, Other)
  Sender: FDA-Public Use
  Company Number: BR-ALEXION PHARMACEUTICALS INC-A201503445

PATIENT
  Age: 3 Year
  Sex: Male
  Weight: 17 kg

DRUGS (9)
  1. CLENIL                             /00212602/ [Concomitant]
     Active Substance: BECLOMETHASONE DIPROPIONATE
     Indication: ASTHMA
     Dosage: 400 ?G, UNK
     Route: 065
  2. LOSARTAN. [Concomitant]
     Active Substance: LOSARTAN
     Indication: PRODUCT USED FOR UNKNOWN INDICATION
     Dosage: UNK
     Route: 065
     Dates: start: 201509
  3. NIFEDIPINE. [Concomitant]
     Active Substance: NIFEDIPINE
     Indication: PRODUCT USED FOR UNKNOWN INDICATION
     Dosage: UNK
     Route: 065
     Dates: start: 201509
  4. MINOXIDIL. [Concomitant]
     Active Substance: MINOXIDIL
     Indication: PRODUCT USED FOR UNKNOWN INDICATION
     Dosage: 0.7 ?G/KG, UNK
     Route: 065
     Dates: start: 201509
  5. SOLIRIS [Suspect]
     Active Substance: ECULIZUMAB
     Dosage: 300 MG, Q2W
     Route: 042
     Dates: start: 20150710
  6. CAPTOPRIL. [Concomitant]
     Active Substance: CAPTOPRIL
     Indication: PRODUCT USED FOR UNKNOWN INDICATION
     Dosage: UNK
     Route: 065
     Dates: start: 201509
  7. SOLIRIS [Suspect]
     Active Substance: ECULIZUMAB
     Indication: HAEMOLYTIC URAEMIC SYNDROME
     Dosage: 600 MG, QW
     Route: 042
     Dates: start: 20150619, end: 20150626
  8. NIPRIDE [Concomitant]
     Active Substance: SODIUM NITROPRUSSIDE
     Indication: HYPERTENSION
     Dosage: UNK
     Route: 042
     Dates: start: 20150919
  9. MINOXIDIL. [Concomitant]
     Active Substance: MINOXIDIL
     Dosage: 0.6 MG/KG, QD
     Route: 065

REACTIONS (12)
  - Incorrect dose administered [Recovered/Resolved]
  - Pyrexia [Recovered/Resolved]
  - Respiratory disorder [Not Recovered/Not Resolved]
  - Testicular infarction [Recovering/Resolving]
  - Staphylococcal infection [Not Recovered/Not Resolved]
  - Myocardial infarction [Recovering/Resolving]
  - Pleural effusion [Recovering/Resolving]
  - Dyspnoea [Not Recovered/Not Resolved]
  - Ascites [Unknown]
  - Bacterial tracheitis [Not Recovered/Not Resolved]
  - Hypertension [Not Recovered/Not Resolved]
  - Polyserositis [Recovering/Resolving]

NARRATIVE: CASE EVENT DATE: 20150626
